FAERS Safety Report 20384843 (Version 2)
Quarter: 2022Q1

REPORT INFORMATION
  Report Type: Spontaneous
  Country: JP (occurrence: JP)
  Receive Date: 20220127
  Receipt Date: 20220224
  Transmission Date: 20220423
  Serious: Yes (Hospitalization)
  Sender: FDA-Public Use
  Company Number: JP-ABBVIE-22K-087-4252498-00

PATIENT
  Age: 44 Year
  Sex: Male
  Weight: 73.9 kg

DRUGS (6)
  1. HUMIRA [Suspect]
     Active Substance: ADALIMUMAB
     Indication: Crohn^s disease
     Route: 058
     Dates: start: 20120526
  2. HUMIRA [Suspect]
     Active Substance: ADALIMUMAB
     Dosage: DOSE INCREASED
     Route: 058
     Dates: end: 20211112
  3. BUDESONIDE [Concomitant]
     Active Substance: BUDESONIDE
     Indication: Crohn^s disease
     Route: 048
     Dates: start: 20210703, end: 20210917
  4. MESALAMINE [Concomitant]
     Active Substance: MESALAMINE
     Indication: Crohn^s disease
     Route: 048
     Dates: start: 20041113
  5. POLAPREZINC [Concomitant]
     Active Substance: POLAPREZINC
     Indication: Hypozincaemia
     Route: 048
     Dates: start: 20210313
  6. AMINO ACIDS\CARBOHYDRATES\MINERALS\SOYBEAN OIL\VITAMINS [Concomitant]
     Active Substance: AMINO ACIDS\CARBOHYDRATES\MINERALS\SOYBEAN OIL\VITAMINS
     Indication: Crohn^s disease
     Route: 048
     Dates: start: 20041113

REACTIONS (4)
  - C-reactive protein increased [Recovering/Resolving]
  - Pneumonia legionella [Recovering/Resolving]
  - Pyrexia [Recovering/Resolving]
  - Atypical mycobacterial infection [Recovered/Resolved]

NARRATIVE: CASE EVENT DATE: 20180401
